FAERS Safety Report 8855004 (Version 1)
Quarter: 2012Q4

REPORT INFORMATION
  Report Type: 
  Country: US (occurrence: US)
  Receive Date: 20121023
  Receipt Date: 20121023
  Transmission Date: 20130627
  Serious: Yes (Other)
  Sender: FDA-Public Use
  Company Number: US-PFIZER INC-2012261847

PATIENT

DRUGS (1)
  1. PREMARIN [Suspect]
     Dosage: UNK
     Route: 048
     Dates: start: 1962

REACTIONS (1)
  - Breast cancer [Unknown]
